FAERS Safety Report 6680956-7 (Version None)
Quarter: 2010Q2

REPORT INFORMATION
  Report Type: 
  Country: None (occurrence: None)
  Receive Date: 20100414
  Receipt Date: 20100408
  Transmission Date: 20101027
  Serious: Yes (Other)
  Sender: FDA-Public Use
  Company Number: JP-BAYER-201011415BYL

PATIENT
  Age: 70 Year
  Sex: Male
  Weight: 55 kg

DRUGS (10)
  1. ASPIRIN [Suspect]
     Indication: ANGINA PECTORIS
     Dosage: TOTAL DAILY DOSE: 100 MG  UNIT DOSE: 100 MG
     Route: 048
     Dates: start: 20090411, end: 20100305
  2. ASPIRIN [Suspect]
     Dosage: TOTAL DAILY DOSE: 100 MG  UNIT DOSE: 100 MG
     Route: 048
     Dates: start: 20100313, end: 20100317
  3. ARTIST [Suspect]
     Indication: DRUG USE FOR UNKNOWN INDICATION
     Dosage: TOTAL DAILY DOSE: 10 MG  UNIT DOSE: 10 MG
     Route: 048
     Dates: start: 20090707, end: 20100305
  4. ARTIST [Suspect]
     Dosage: TOTAL DAILY DOSE: 10 MG  UNIT DOSE: 10 MG
     Route: 048
     Dates: start: 20100310
  5. TANATRIL [Suspect]
     Indication: DRUG USE FOR UNKNOWN INDICATION
     Dosage: TOTAL DAILY DOSE: 5 MG  UNIT DOSE: 5 MG
     Route: 048
     Dates: start: 20090602, end: 20100305
  6. TANATRIL [Suspect]
     Dosage: TOTAL DAILY DOSE: 5 MG  UNIT DOSE: 5 MG
     Route: 048
     Dates: start: 20100310
  7. LIPITOR [Suspect]
     Indication: DRUG USE FOR UNKNOWN INDICATION
     Dosage: TOTAL DAILY DOSE: 10 MG  UNIT DOSE: 10 MG
     Route: 048
     Dates: start: 20090908, end: 20100305
  8. LIPITOR [Suspect]
     Dosage: TOTAL DAILY DOSE: 10 MG  UNIT DOSE: 10 MG
     Route: 048
     Dates: start: 20100310
  9. URITOS [Concomitant]
     Indication: DRUG USE FOR UNKNOWN INDICATION
     Dosage: TOTAL DAILY DOSE: 0.1 MG  UNIT DOSE: 0.1 MG
     Route: 048
     Dates: start: 20090212
  10. AMOBAN [Concomitant]
     Indication: DRUG USE FOR UNKNOWN INDICATION
     Dosage: TOTAL DAILY DOSE: 7.5 MG  UNIT DOSE: 7.5 MG
     Route: 048
     Dates: start: 20090326

REACTIONS (1)
  - HENOCH-SCHONLEIN PURPURA [None]
